FAERS Safety Report 6545748-8 (Version None)
Quarter: 2010Q1

REPORT INFORMATION
  Report Type: 
  Country: None (occurrence: None)
  Receive Date: 20100119
  Receipt Date: 20100104
  Transmission Date: 20100710
  Serious: Yes (Hospitalization)
  Sender: FDA-Public Use
  Company Number: 2009AC000100

PATIENT
  Age: 66 Year
  Sex: Female

DRUGS (23)
  1. DIGOXIN [Suspect]
     Dosage: 0.125 MG;TIW;PO
     Route: 048
  2. DIGOXIN [Suspect]
     Dosage: 0.25 MG;QD;PO
     Route: 048
  3. ASPIRIN [Concomitant]
  4. ARIMIDEX [Concomitant]
  5. CALCIUM [Concomitant]
  6. ZETIA [Concomitant]
  7. GEMFIBROZIL [Concomitant]
  8. LISINOPRIL [Concomitant]
  9. ALLOPURINOL [Concomitant]
  10. SIMVASTATIN [Concomitant]
  11. INDERAL [Concomitant]
  12. SELENIUM [Concomitant]
  13. FEMARA [Concomitant]
  14. GLUCOSAMINE [Concomitant]
  15. MULTI-VITAMINS [Concomitant]
  16. FISH OIL [Concomitant]
  17. PROPRANOLOL [Concomitant]
  18. TIMOPTIC-XE [Concomitant]
  19. ALPHAGAN [Concomitant]
  20. OPTIPRANOLOL [Concomitant]
  21. KEFLEX [Concomitant]
  22. LUMIGAN [Concomitant]
  23. HYDROCHLOROTHIAZIDE [Concomitant]

REACTIONS (23)
  - ARRHYTHMIA [None]
  - ATRIOVENTRICULAR BLOCK FIRST DEGREE [None]
  - CHEST DISCOMFORT [None]
  - CONTUSION [None]
  - DECREASED APPETITE [None]
  - DERMATITIS [None]
  - DYSLIPIDAEMIA [None]
  - DYSPNOEA [None]
  - GOUT [None]
  - HYPERLIPIDAEMIA [None]
  - HYPERTENSION [None]
  - MUSCULOSKELETAL PAIN [None]
  - MYALGIA [None]
  - MYOSITIS [None]
  - NECK PAIN [None]
  - REFLUX OESOPHAGITIS [None]
  - ROTATOR CUFF SYNDROME [None]
  - SKIN PAPILLOMA [None]
  - SUPRAVENTRICULAR TACHYCARDIA [None]
  - THERAPEUTIC AGENT TOXICITY [None]
  - UPPER RESPIRATORY TRACT INFECTION [None]
  - VISUAL FIELD DEFECT [None]
  - WEIGHT DECREASED [None]
